FAERS Safety Report 5401508-2 (Version None)
Quarter: 2007Q3

REPORT INFORMATION
  Report Type: 
  Country: None (occurrence: None)
  Receive Date: 20070731
  Receipt Date: 20070719
  Transmission Date: 20080115
  Serious: Yes (Other)
  Sender: FDA-Public Use
  Company Number: GB-ROCHE-503243

PATIENT
  Age: 56 Year
  Sex: Female
  Weight: 86.1 kg

DRUGS (8)
  1. XENICAL [Suspect]
     Indication: OBESITY
     Route: 048
     Dates: start: 20070606
  2. VALPROATE SODIUM [Concomitant]
     Route: 048
  3. CODEINE PHOSPHATE AND ACETAMINOPHEN [Concomitant]
  4. ACTOS [Concomitant]
  5. GLIMEPIRIDE [Concomitant]
     Route: 048
     Dates: start: 20060401
  6. SIMVASTATIN [Concomitant]
  7. LORATADINE [Concomitant]
  8. PIOGLITAZONE [Concomitant]
     Route: 048
     Dates: start: 20060601

REACTIONS (1)
  - EPILEPSY [None]
